FAERS Safety Report 9515305 (Version 1)
Quarter: 2013Q1

REPORT INFORMATION
  Report Type: Spontaneous
  Country: US (occurrence: None)
  Receive Date: 20130305
  Receipt Date: 20130305
  Transmission Date: 20140127
  Serious: Yes (Hospitalization, Other)
  Sender: FDA-Public Use
  Company Number: 163-21880-12090483

PATIENT
  Sex: Female

DRUGS (1)
  1. REVLIMID [Suspect]
     Indication: PLASMA CELL MYELOMA
     Dosage: 25 MG, 1 IN 1 D , PO
     Route: 048
     Dates: start: 20120826, end: 20120903

REACTIONS (4)
  - Dysphonia [None]
  - Hypersensitivity [None]
  - Urticaria [None]
  - Swelling face [None]
